FAERS Safety Report 7907657-9 (Version None)
Quarter: 2011Q4

REPORT INFORMATION
  Report Type: 
  Country: None (occurrence: None)
  Receive Date: 20111110
  Receipt Date: 20111104
  Transmission Date: 20120403
  Serious: Yes (Other)
  Sender: FDA-Public Use
  Company Number: JP-B.I. PHARMACEUTICALS,INC./RIDGEFIELD-2011-BP-25264NB

PATIENT
  Sex: Male
  Weight: 70.6 kg

DRUGS (5)
  1. ZOLOFT [Concomitant]
     Dosage: 25 MG
     Route: 065
     Dates: start: 20111015
  2. MICARDIS [Suspect]
     Indication: HYPERTENSION
     Dosage: 80 MG
     Route: 048
     Dates: start: 20111010, end: 20111017
  3. ADALAT [Concomitant]
     Indication: HYPERTENSION
     Dosage: 40 MG
     Route: 048
     Dates: start: 20111010
  4. TEGRETOL [Concomitant]
     Dosage: 300 MG
     Route: 065
     Dates: start: 20111011
  5. CARVEDILOL [Concomitant]
     Dosage: 10 MG
     Route: 065
     Dates: start: 20111012

REACTIONS (1)
  - HYPONATRAEMIA [None]
